FAERS Safety Report 17117455 (Version 3)
Quarter: 2020Q1

REPORT INFORMATION
  Report Type: Other
  Country: AU (occurrence: AU)
  Receive Date: 20191205
  Receipt Date: 20200121
  Transmission Date: 20200409
  Serious: No
  Sender: FDA-Public Use
  Company Number: AU-LEXICON PHARMACEUTICALS, INC-19-1606-01060

PATIENT
  Age: 77 Year
  Sex: Male

DRUGS (5)
  1. REAPTAN [Concomitant]
     Active Substance: AMLODIPINE BESYLATE\PERINDOPRIL ARGININE
     Dosage: 5/5
  2. SOMATULINE AUTOGEL [Suspect]
     Active Substance: LANREOTIDE ACETATE
     Indication: CARCINOID SYNDROME
     Route: 058
     Dates: start: 201711
  3. SOMATULINE AUTOGEL [Suspect]
     Active Substance: LANREOTIDE ACETATE
     Route: 058
     Dates: start: 20191016
  4. ATENOLOL. [Concomitant]
     Active Substance: ATENOLOL
     Dosage: 1/2 DAILY (50 MG)
  5. XERMELO [Suspect]
     Active Substance: TELOTRISTAT ETHYL
     Indication: DIARRHOEA
     Dates: start: 20190719, end: 20190811

REACTIONS (10)
  - Diarrhoea [Not Recovered/Not Resolved]
  - Off label use [Unknown]
  - Myalgia [Recovered/Resolved]
  - Drug ineffective [Unknown]
  - Abdominal pain [Not Recovered/Not Resolved]
  - Diarrhoea [Not Recovered/Not Resolved]
  - Asthenia [Not Recovered/Not Resolved]
  - Abdominal discomfort [Not Recovered/Not Resolved]
  - Nausea [Not Recovered/Not Resolved]
  - Abdominal distension [Recovered/Resolved]

NARRATIVE: CASE EVENT DATE: 201907
